FAERS Safety Report 9696803 (Version 4)
Quarter: 2014Q1

REPORT INFORMATION
  Report Type: Report from Study
  Country: FR (occurrence: FR)
  Receive Date: 20131119
  Receipt Date: 20140328
  Transmission Date: 20141002
  Serious: Yes (Hospitalization, Other)
  Sender: FDA-Public Use
  Company Number: FR-ACORDA-ACO_100217_2013

PATIENT
  Age: 64 Year
  Sex: Female
  Weight: 63 kg

DRUGS (5)
  1. FAMPYRA [Suspect]
     Indication: MULTIPLE SCLEROSIS
     Dosage: 10 MG, BID
     Route: 048
     Dates: start: 20130610, end: 201310
  2. DANTRIUM [Concomitant]
     Indication: MULTIPLE SCLEROSIS
     Dosage: 25 UNK, TID
     Route: 065
     Dates: start: 20060517
  3. TRILEPTAL [Concomitant]
     Indication: MULTIPLE SCLEROSIS
     Dosage: 1 AND A HALF TABLET, BID
     Route: 065
     Dates: start: 20060517
  4. BETAFERON [Concomitant]
     Indication: MULTIPLE SCLEROSIS
     Dosage: 8 MILLION UNITS, ONCE EVERY 3 DAYS
     Route: 065
     Dates: start: 20080416
  5. IXPRIM [Concomitant]
     Indication: MULTIPLE SCLEROSIS
     Dosage: UNK, BID
     Route: 065
     Dates: start: 20080416

REACTIONS (1)
  - Myocardial infarction [Recovered/Resolved]
